FAERS Safety Report 21425475 (Version 3)
Quarter: 2022Q4

REPORT INFORMATION
  Report Type: Report from Study
  Country: US (occurrence: US)
  Receive Date: 20221008
  Receipt Date: 20221215
  Transmission Date: 20230112
  Serious: Yes (Other)
  Sender: FDA-Public Use
  Company Number: US-ABBVIE-22K-163-4497018-00

PATIENT
  Sex: Male

DRUGS (3)
  1. IMBRUVICA [Suspect]
     Active Substance: IBRUTINIB
     Indication: Chronic lymphocytic leukaemia
     Dosage: DRUG END DATE : 2022
     Route: 048
     Dates: start: 20220729
  2. IMBRUVICA [Suspect]
     Active Substance: IBRUTINIB
     Indication: Chronic lymphocytic leukaemia
     Dosage: 420 MILLIGRAM?DRUG START DATE: 2022
     Route: 048
  3. IMBRUVICA [Suspect]
     Active Substance: IBRUTINIB
     Indication: Chronic lymphocytic leukaemia
     Route: 048

REACTIONS (14)
  - Platelet count decreased [Unknown]
  - Fatigue [Unknown]
  - Frustration tolerance decreased [Unknown]
  - Anaemia [Unknown]
  - Lymphadenopathy [Unknown]
  - Photophobia [Recovered/Resolved]
  - Haemoglobin decreased [Unknown]
  - Eye irritation [Unknown]
  - Myalgia [Unknown]
  - White blood cell count decreased [Unknown]
  - Pain [Unknown]
  - Back pain [Unknown]
  - Haematocrit decreased [Unknown]
  - Pain in jaw [Unknown]
